FAERS Safety Report 18005784 (Version 1)
Quarter: 2020Q3

REPORT INFORMATION
  Report Type: Spontaneous
  Country: US (occurrence: US)
  Receive Date: 20200709
  Receipt Date: 20200709
  Transmission Date: 20201103
  Serious: Yes (Hospitalization)
  Sender: FDA-Public Use
  Company Number: None

PATIENT
  Age: 65 Year
  Sex: Female

DRUGS (2)
  1. MYCOPHENOLATE 250MG [Suspect]
     Active Substance: MYCOPHENOLIC ACID
     Indication: LUNG TRANSPLANT
     Route: 048
  2. TACROLIMUS 1MG AND 0.5MG CAP [Suspect]
     Active Substance: TACROLIMUS

REACTIONS (2)
  - Wrong dose [None]
  - Product dose omission issue [None]

NARRATIVE: CASE EVENT DATE: 20200708
